FAERS Safety Report 16769856 (Version 5)
Quarter: 2019Q3

REPORT INFORMATION
  Report Type: Spontaneous
  Country: US (occurrence: US)
  Receive Date: 20190904
  Receipt Date: 20190925
  Transmission Date: 20191005
  Serious: Yes (Other)
  Sender: FDA-Public Use
  Company Number: US-AMGEN INC.-USASP2019140742

PATIENT
  Age: 58 Year
  Sex: Female
  Weight: 64.4 kg

DRUGS (16)
  1. KLONOPIN [Concomitant]
     Active Substance: CLONAZEPAM
     Dosage: 0.5 MILLIGRAM, QMO
     Route: 048
  2. AMERGE [Concomitant]
     Active Substance: NARATRIPTAN HYDROCHLORIDE
     Indication: MIGRAINE
     Dosage: 2.5 MILLIGRAM, AS NECESSARY (MAX 2 DOSES IN 24 HOURS)
     Route: 048
     Dates: start: 20170313
  3. ZOLOFT [Concomitant]
     Active Substance: SERTRALINE HYDROCHLORIDE
     Indication: MIGRAINE
  4. PROGESTERONE. [Concomitant]
     Active Substance: PROGESTERONE
  5. TOPAMAX [Concomitant]
     Active Substance: TOPIRAMATE
     Indication: MIGRAINE
  6. NAMENDA [Concomitant]
     Active Substance: MEMANTINE HYDROCHLORIDE
     Indication: MIGRAINE
     Dosage: RESTARTED IN MAR/2018 AT 7.5 MF, BID, 10 MILLIGRAM, BID (PATIENT TAKES 5 MG, BID)
     Route: 048
  7. KEPPRA [Concomitant]
     Active Substance: LEVETIRACETAM
     Indication: MIGRAINE
  8. BOTOX [Concomitant]
     Active Substance: ONABOTULINUMTOXINA
     Indication: MIGRAINE
  9. BOTOX [Concomitant]
     Active Substance: ONABOTULINUMTOXINA
     Indication: MUSCULAR WEAKNESS
  10. SYNTHROID [Concomitant]
     Active Substance: LEVOTHYROXINE SODIUM
     Dosage: 88 MICROGRAM, QD
     Route: 048
  11. MAGNESIUM GLYCINATE [Concomitant]
     Active Substance: MAGNESIUM GLYCINATE
     Dosage: 400 MILLIGRAM
     Route: 048
  12. EXCEDRIN MIGRAINE [Concomitant]
     Active Substance: ACETAMINOPHEN\ASPIRIN\CAFFEINE
     Indication: PAIN
     Dosage: 250-250-65 MILLIGRAM, EVERY 6 HOURS
     Route: 048
  13. AIMOVIG [Suspect]
     Active Substance: ERENUMAB-AOOE
     Indication: MIGRAINE PROPHYLAXIS
     Dosage: 140 MILLIGRAM, QMO
     Route: 058
     Dates: start: 20180816
  14. DELTASONE [PREDNISOLONE] [Concomitant]
     Dosage: 10 MILLIGRAM, QD
  15. ADVIL [IBUPROFEN] [Concomitant]
     Active Substance: IBUPROFEN
     Indication: PAIN
  16. LEXAPRO [Concomitant]
     Active Substance: ESCITALOPRAM OXALATE
     Indication: MIGRAINE

REACTIONS (15)
  - Tuberculin test positive [Unknown]
  - Constipation [Recovering/Resolving]
  - Incorrect dose administered by device [Unknown]
  - Synovitis [Unknown]
  - Fatigue [Not Recovered/Not Resolved]
  - Injection site mass [Recovered/Resolved]
  - Therapeutic response unexpected [Unknown]
  - Device malfunction [Unknown]
  - Accidental exposure to product [Unknown]
  - Skin disorder [Unknown]
  - Fear of injection [Not Recovered/Not Resolved]
  - Anxiety [Unknown]
  - Therapeutic product effect incomplete [Unknown]
  - Inflammation [Unknown]
  - Injection site pain [Unknown]

NARRATIVE: CASE EVENT DATE: 2018
